FAERS Safety Report 4823717-3 (Version None)
Quarter: 2005Q4

REPORT INFORMATION
  Report Type: 
  Country: None (occurrence: None)
  Receive Date: 20051109
  Receipt Date: 20051028
  Transmission Date: 20060501
  Serious: Yes (Hospitalization)
  Sender: FDA-Public Use
  Company Number: GB-ROCHE-422875

PATIENT
  Age: 56 Year
  Sex: Female

DRUGS (3)
  1. CAPECITABINE [Suspect]
     Indication: BREAST CANCER
     Dosage: ON DAYS 1-14 OF A 3 WEEK CYCLE.
     Route: 048
     Dates: start: 20050712
  2. IXABEPILONE [Suspect]
     Indication: BREAST CANCER
     Route: 042
     Dates: start: 20050712
  3. CLODRONIC ACID [Concomitant]
     Dates: start: 20041208

REACTIONS (1)
  - TRANSIENT ISCHAEMIC ATTACK [None]
